FAERS Safety Report 11076577 (Version 3)
Quarter: 2015Q2

REPORT INFORMATION
  Report Type: Spontaneous
  Country: US (occurrence: US)
  Receive Date: 20150429
  Receipt Date: 20150601
  Transmission Date: 20150821
  Serious: Yes (Other)
  Sender: FDA-Public Use
  Company Number: US-ABBVIE-15P-163-1383380-00

PATIENT
  Sex: Male
  Weight: 128.94 kg

DRUGS (3)
  1. LEVITRA [Concomitant]
     Active Substance: VARDENAFIL HYDROCHLORIDE TRIHYDRATE
     Indication: PRODUCT USED FOR UNKNOWN INDICATION
     Route: 065
  2. ANDROGEL [Suspect]
     Active Substance: TESTOSTERONE
     Indication: BLOOD TESTOSTERONE DECREASED
     Dosage: 2 PACKETS PER DAY
     Route: 061
     Dates: start: 2002, end: 2010
  3. ANDROGEL [Suspect]
     Active Substance: TESTOSTERONE
     Indication: BLOOD TESTOSTERONE DECREASED
     Dosage: 4 PUMPS PERDAY
     Route: 061
     Dates: start: 201503

REACTIONS (8)
  - Fatigue [Recovered/Resolved]
  - Depression [Recovered/Resolved]
  - Ventricular extrasystoles [Unknown]
  - Blood cholesterol increased [Not Recovered/Not Resolved]
  - Atrial fibrillation [Recovered/Resolved]
  - Atrial fibrillation [Not Recovered/Not Resolved]
  - Blood testosterone decreased [Recovered/Resolved]
  - Loss of consciousness [Recovered/Resolved]

NARRATIVE: CASE EVENT DATE: 2006
